FAERS Safety Report 8901488 (Version 1)
Quarter: 2012Q4

REPORT INFORMATION
  Report Type: 
  Country: US (occurrence: US)
  Receive Date: 20121109
  Receipt Date: 20121109
  Transmission Date: 20130627
  Serious: No
  Sender: FDA-Public Use
  Company Number: US-BAYER-2012-116514

PATIENT
  Age: 26 Year
  Sex: Female

DRUGS (2)
  1. MIRENA [Suspect]
     Indication: MENORRHAGIA
     Dosage: 20 mcg/24hr, CONT
     Route: 015
     Dates: start: 20120925, end: 20121105
  2. MIRENA [Suspect]
     Indication: MENSTRUAL CRAMPS

REACTIONS (4)
  - Menorrhagia [None]
  - Dysmenorrhoea [None]
  - Abdominal pain lower [None]
  - Drug ineffective [None]
